FAERS Safety Report 8620126-6 (Version None)
Quarter: 2012Q3

REPORT INFORMATION
  Report Type: 
  Country: None (occurrence: None)
  Receive Date: 20120824
  Receipt Date: 20120725
  Transmission Date: 20120928
  Serious: Yes (Death)
  Sender: FDA-Public Use
  Company Number: JP-009507513-2012SP026356

PATIENT

DRUGS (16)
  1. DIAZOXIDE [Suspect]
     Dosage: 75 MG IN THE MORNING AND IN THE EVENING, 50 MG IN THE DAYTIME
     Route: 048
     Dates: start: 20100316, end: 20100318
  2. DIAZOXIDE [Suspect]
     Dosage: 100 MG IN THE MORNING AND AT NIGHT, 50 MG IN THE DAYTIME
     Route: 048
     Dates: start: 20100319, end: 20100323
  3. DIAZOXIDE [Suspect]
     Dosage: 50 MG, BID
     Route: 048
     Dates: start: 20100331, end: 20100401
  4. DIAZOXIDE [Suspect]
     Dosage: 50 MG, TID
     Route: 048
     Dates: start: 20100403, end: 20100415
  5. OCTREOTIDE ACETATE [Concomitant]
     Indication: PRODUCT USED FOR UNKNOWN INDICATION
     Dosage: UNK MG, UNK
     Route: 030
     Dates: start: 20100412, end: 20100412
  6. LASIX [Concomitant]
     Indication: PRODUCT USED FOR UNKNOWN INDICATION
     Dosage: 40 MG, UNK
     Route: 048
     Dates: start: 20100323, end: 20100702
  7. DIAZOXIDE [Suspect]
     Dosage: 50 MG IN THE MORNING AND IN THE DAYTIME, 150 MG AT NIGHT
     Route: 048
     Dates: start: 20100324, end: 20100325
  8. SANDOSTATIN [Concomitant]
     Indication: INSULINOMA
     Dosage: 100 MG, UNK
     Route: 058
     Dates: start: 20100330, end: 20100425
  9. DIAZOXIDE [Suspect]
     Indication: HYPOGLYCAEMIA
     Dosage: 50 MG, TID
     Route: 048
     Dates: start: 20100312, end: 20100315
  10. DIAZOXIDE [Suspect]
     Dosage: 50 MG IN THE MORNING AND IN THE DAYTIME, 100 MG AT NIGHT
     Route: 048
     Dates: start: 20100326, end: 20100326
  11. DIAZOXIDE [Suspect]
     Dosage: 50 MG, TID
     Route: 048
     Dates: start: 20100327, end: 20100330
  12. OCTREOTIDE ACETATE [Concomitant]
     Dosage: 40 MG, UNK
     Dates: start: 20100614, end: 20100614
  13. PREDNISOLONE [Concomitant]
     Indication: PRODUCT USED FOR UNKNOWN INDICATION
     Dosage: 15 MG, UNK
     Route: 048
     Dates: start: 20100414, end: 20100502
  14. DECADRON [Concomitant]
     Indication: PRODUCT USED FOR UNKNOWN INDICATION
     Dosage: 3.3 MG, UNK
     Route: 042
     Dates: start: 20100503, end: 20100702
  15. DIAZOXIDE [Suspect]
     Dosage: 200 MG, QD
     Route: 048
     Dates: start: 20100316, end: 20100323
  16. OCTREOTIDE ACETATE [Concomitant]
     Dosage: 30 MG, UNK
     Route: 030
     Dates: start: 20100510, end: 20100510

REACTIONS (2)
  - DISEASE PROGRESSION [None]
  - OEDEMA [None]
